FAERS Safety Report 16464564 (Version 1)
Quarter: 2019Q2

REPORT INFORMATION
  Report Type: Spontaneous
  Country: US (occurrence: US)
  Receive Date: 20190621
  Receipt Date: 20190621
  Transmission Date: 20190711
  Serious: No
  Sender: FDA-Public Use
  Company Number: US-009507513-1906USA008429

PATIENT
  Age: 25 Year

DRUGS (1)
  1. NEXPLANON [Suspect]
     Active Substance: ETONOGESTREL
     Dosage: 1 IMPLANT
     Route: 059
     Dates: start: 201810, end: 20190520

REACTIONS (4)
  - Implant site pain [Unknown]
  - Complication of device removal [Recovered/Resolved]
  - Complication associated with device [Recovered/Resolved]
  - Device kink [Recovered/Resolved]
